FAERS Safety Report 5240847-5 (Version None)
Quarter: 2007Q1

REPORT INFORMATION
  Report Type: 
  Country: None (occurrence: None)
  Receive Date: 20061208
  Receipt Date: 20051031
  Transmission Date: 20070707
  Serious: Yes (Other)
  Sender: FDA-Public Use
  Company Number: 2005UW16497

PATIENT
  Age: 52 Year
  Sex: Female

DRUGS (1)
  1. CRESTOR [Suspect]
     Dosage: 5 MG QD PO
     Route: 048

REACTIONS (3)
  - BLOOD CREATINE PHOSPHOKINASE [None]
  - GAIT DISTURBANCE [None]
  - MYALGIA [None]
